FAERS Safety Report 4988340-9 (Version None)
Quarter: 2006Q2

REPORT INFORMATION
  Report Type: 
  Country: None (occurrence: None)
  Receive Date: 20060502
  Receipt Date: 20060421
  Transmission Date: 20061013
  Serious: Yes (Other)
  Sender: FDA-Public Use
  Company Number: GB-JNJFOC-20060302082

PATIENT
  Sex: Female
  Weight: 62 kg

DRUGS (9)
  1. REMICADE [Suspect]
     Dosage: 10 INFUSIONS
     Route: 042
  2. PREDNISOLONE [Concomitant]
     Route: 048
  3. METHOTREXATE [Concomitant]
     Route: 048
  4. FOLIC ACID [Concomitant]
     Route: 048
  5. MIRTAZAPINE [Concomitant]
     Route: 048
  6. THYROXINE [Concomitant]
     Route: 048
  7. ACETAMINOPHEN W/ CODEINE [Concomitant]
     Route: 048
  8. ACETAMINOPHEN W/ CODEINE [Concomitant]
     Route: 048
  9. ALENDRONATE ACID [Concomitant]
     Route: 048

REACTIONS (1)
  - PROTEINURIA [None]
